FAERS Safety Report 6904627-4 (Version None)
Quarter: 2010Q3

REPORT INFORMATION
  Report Type: 
  Country: None (occurrence: None)
  Receive Date: 20100804
  Receipt Date: 20090619
  Transmission Date: 20110219
  Serious: No
  Sender: FDA-Public Use
  Company Number: US-PFIZER INC-2009206519

PATIENT
  Sex: Female
  Weight: 56.689 kg

DRUGS (5)
  1. LYRICA [Suspect]
     Indication: PAIN IN EXTREMITY
     Dates: start: 20090401, end: 20090401
  2. METOPROLOL [Concomitant]
     Dosage: UNK
  3. HYDROCODONE [Concomitant]
     Dosage: UNK
  4. MAGNESIUM OXIDE [Concomitant]
     Dosage: 400 MG, 1X/DAY
  5. AMLODIPINE [Concomitant]
     Dosage: UNK

REACTIONS (3)
  - DIZZINESS [None]
  - FEELING ABNORMAL [None]
  - FEELING DRUNK [None]
